FAERS Safety Report 6356458-4 (Version None)
Quarter: 2009Q3

REPORT INFORMATION
  Report Type: 
  Country: None (occurrence: None)
  Receive Date: 20090915
  Receipt Date: 20090908
  Transmission Date: 20100115
  Serious: Yes (Hospitalization)
  Sender: FDA-Public Use
  Company Number: A0806825A

PATIENT
  Age: 59 Year
  Sex: Female
  Weight: 95 kg

DRUGS (10)
  1. AVANDIA [Suspect]
     Dosage: 8MG PER DAY
     Route: 048
     Dates: end: 20070124
  2. GLIPIZIDE [Concomitant]
  3. GLUCOPHAGE [Concomitant]
  4. NIACIN [Concomitant]
  5. GEMFIBROZIL [Concomitant]
  6. ZETIA [Concomitant]
  7. GABAPENTIN [Concomitant]
  8. LYRICA [Concomitant]
  9. SYNTHROID [Concomitant]
  10. LISINOPRIL [Concomitant]

REACTIONS (5)
  - CEREBROVASCULAR ACCIDENT [None]
  - HYPOAESTHESIA [None]
  - MYOCARDIAL INFARCTION [None]
  - PARAESTHESIA [None]
  - VISUAL ACUITY REDUCED [None]
